FAERS Safety Report 6449621-5 (Version None)
Quarter: 2009Q4

REPORT INFORMATION
  Report Type: 
  Country: None (occurrence: None)
  Receive Date: 20091120
  Receipt Date: 20091109
  Transmission Date: 20100525
  Serious: Yes (Other)
  Sender: FDA-Public Use
  Company Number: JP-PFIZER INC-2009290648

PATIENT
  Age: 77 Year
  Sex: Female

DRUGS (3)
  1. ZOLOFT [Suspect]
     Indication: ANXIETY
     Dosage: 50MG/DAY
     Route: 048
     Dates: start: 20081015
  2. LORAZEPAM [Concomitant]
     Dosage: 1.5MG/DAY
     Route: 048
     Dates: start: 20081015
  3. SOLANAX [Concomitant]
     Dosage: 0.4MG/DAY
     Route: 048
     Dates: start: 20081015

REACTIONS (2)
  - COGNITIVE DISORDER [None]
  - HALLUCINATION, VISUAL [None]
